FAERS Safety Report 21215944 (Version 1)
Quarter: 2022Q3

REPORT INFORMATION
  Report Type: Report from Study
  Country: CN (occurrence: CN)
  Receive Date: 20220816
  Receipt Date: 20220816
  Transmission Date: 20221027
  Serious: Yes (Other)
  Sender: FDA-Public Use
  Company Number: CN-PFIZER INC-PV202200038137

PATIENT

DRUGS (2)
  1. TIGECYCLINE [Suspect]
     Active Substance: TIGECYCLINE
     Indication: Acinetobacter infection
     Dosage: 200 MG, FOR THE FIRST DOSE
  2. TIGECYCLINE [Suspect]
     Active Substance: TIGECYCLINE
     Dosage: 100 MG, Q12 H FOR MAINTENANCE

REACTIONS (2)
  - Haemorrhagic diathesis [Unknown]
  - Coagulopathy [Unknown]
